FAERS Safety Report 4610685-2 (Version None)
Quarter: 2005Q2

REPORT INFORMATION
  Report Type: 
  Country: None (occurrence: None)
  Receive Date: 20050301
  Receipt Date: 20041207
  Transmission Date: 20051028
  Serious: No
  Sender: FDA-Public Use
  Company Number: WAES 0412USA00886

PATIENT
  Age: 59 Year
  Sex: Male

DRUGS (5)
  1. ZETIA [Suspect]
     Dosage: 10 MG/DAILY/PO
     Route: 048
     Dates: start: 20041116, end: 20041201
  2. ATACAND [Concomitant]
  3. MICROZIDE [Concomitant]
  4. NEXIUM [Concomitant]
  5. PRAVACHOL [Concomitant]

REACTIONS (1)
  - ERECTILE DYSFUNCTION [None]
